FAERS Safety Report 6649956-7 (Version None)
Quarter: 2010Q1

REPORT INFORMATION
  Report Type: 
  Country: None (occurrence: None)
  Receive Date: 20100324
  Receipt Date: 20100324
  Transmission Date: 20100710
  Serious: Yes (Life-Threatening, Hospitalization)
  Sender: FDA-Public Use
  Company Number: None

PATIENT
  Age: 13 Year
  Sex: Male
  Weight: 62.5964 kg

DRUGS (1)
  1. VENOM SKIN TESTING DONE IN OUTPATIENT [Suspect]
     Indication: HYPERSENSITIVITY
     Dosage: DO NOT HAVE ACCESS

REACTIONS (2)
  - DYSPNOEA [None]
  - LIP SWELLING [None]
